FAERS Safety Report 12186944 (Version 1)
Quarter: 2016Q1

REPORT INFORMATION
  Report Type: Spontaneous
  Country: US (occurrence: None)
  Receive Date: 20160316
  Receipt Date: 20160316
  Transmission Date: 20160526
  Serious: Yes (Disabling, Other)
  Sender: FDA-Public Use
  Company Number: None

PATIENT
  Age: 61 Year
  Sex: Female
  Weight: 77.11 kg

DRUGS (3)
  1. VITAMIN D [Concomitant]
     Active Substance: CHOLECALCIFEROL
  2. PROLIA [Suspect]
     Active Substance: DENOSUMAB
     Indication: OSTEOPOROSIS
     Dosage: 1 SHOT 1 X 6 MONTHS INTO THE MUSCLE
     Route: 030
     Dates: start: 20151202
  3. CALCIUM [Concomitant]
     Active Substance: CALCIUM

REACTIONS (27)
  - Skin disorder [None]
  - Cellulitis [None]
  - Rash pustular [None]
  - Drug resistance [None]
  - Fatigue [None]
  - Hypersomnia [None]
  - Abdominal pain [None]
  - Fungal infection [None]
  - Erythema [None]
  - Swelling face [None]
  - Pancreatic disorder [None]
  - Scab [None]
  - Weight increased [None]
  - Back disorder [None]
  - Skin warm [None]
  - Blood pressure increased [None]
  - Nausea [None]
  - Skin abrasion [None]
  - Thirst [None]
  - Rash erythematous [None]
  - Impaired driving ability [None]
  - Abasia [None]
  - Pruritus [None]
  - Vomiting projectile [None]
  - Vision blurred [None]
  - Pain [None]
  - Impaired work ability [None]
